FAERS Safety Report 20850283 (Version 1)
Quarter: 2022Q2

REPORT INFORMATION
  Report Type: Spontaneous
  Country: US (occurrence: US)
  Receive Date: 20220519
  Receipt Date: 20220519
  Transmission Date: 20220721
  Serious: No
  Sender: FDA-Public Use
  Company Number: US-PFIZER INC-202200643870

PATIENT
  Age: 88 Year
  Sex: Female
  Weight: 75.3 kg

DRUGS (4)
  1. IBRANCE [Suspect]
     Active Substance: PALBOCICLIB
     Indication: Breast cancer metastatic
     Dosage: UNK
     Dates: start: 201803
  2. METFORMIN [Concomitant]
     Active Substance: METFORMIN HYDROCHLORIDE
     Indication: Diabetes mellitus
     Dosage: UNK
  3. MINERALS\VITAMINS [Concomitant]
     Active Substance: MINERALS\VITAMINS
     Indication: Retinal artery occlusion
     Dosage: UNK
  4. IBUPROFEN [Concomitant]
     Active Substance: IBUPROFEN
     Indication: Back pain
     Dosage: UNK, 1X/DAY

REACTIONS (6)
  - Meibomian gland dysfunction [Not Recovered/Not Resolved]
  - Vision blurred [Unknown]
  - Blepharitis [Not Recovered/Not Resolved]
  - Eye pain [Unknown]
  - Condition aggravated [Not Recovered/Not Resolved]
  - Visual impairment [Unknown]
